FAERS Safety Report 12094981 (Version 1)
Quarter: 2016Q1

REPORT INFORMATION
  Report Type: Spontaneous
  Country: IT (occurrence: US)
  Receive Date: 20160219
  Receipt Date: 20160219
  Transmission Date: 20160526
  Serious: No
  Sender: FDA-Public Use
  Company Number: IT-PERNIX THERAPEUTICS-2015PT000257

PATIENT

DRUGS (2)
  1. ISOCEF [Suspect]
     Active Substance: CEFTIBUTEN
     Indication: PROPHYLAXIS
     Dosage: 400 MG, DAILY
     Route: 048
     Dates: start: 20151120, end: 20151121
  2. CHOLECALCIFEROL [Concomitant]
     Active Substance: CHOLECALCIFEROL

REACTIONS (1)
  - Rash papular [Recovered/Resolved]

NARRATIVE: CASE EVENT DATE: 20151121
